FAERS Safety Report 19771375 (Version 5)
Quarter: 2021Q4

REPORT INFORMATION
  Report Type: Spontaneous
  Country: JP (occurrence: JP)
  Receive Date: 20210831
  Receipt Date: 20211228
  Transmission Date: 20220303
  Serious: Yes (Hospitalization, Disabling, Other)
  Sender: FDA-Public Use
  Company Number: JP-AMGEN-JPNSP2021131042

PATIENT
  Age: 69 Year
  Sex: Male
  Weight: 58 kg

DRUGS (15)
  1. BLINCYTO [Suspect]
     Active Substance: BLINATUMOMAB
     Indication: Acute lymphocytic leukaemia recurrent
     Dosage: 28 MICROGRAM, QD
     Route: 041
     Dates: start: 20200218, end: 20200316
  2. BLINCYTO [Suspect]
     Active Substance: BLINATUMOMAB
     Dosage: 28 MICROGRAM, QD
     Route: 041
     Dates: start: 20200331, end: 20200413
  3. DASATINIB [Concomitant]
     Active Substance: DASATINIB
  4. CYCLOPHOSPHAMIDE [Concomitant]
     Active Substance: CYCLOPHOSPHAMIDE
  5. VINCRISTINE [Concomitant]
     Active Substance: VINCRISTINE
  6. DOXORUBICIN [Concomitant]
     Active Substance: DOXORUBICIN
  7. DEXAMETHASONE [Concomitant]
     Active Substance: DEXAMETHASONE
  8. METHOTREXATE [Concomitant]
     Active Substance: METHOTREXATE
  9. CYTARABINE [Concomitant]
     Active Substance: CYTARABINE
  10. PONATINIB [Concomitant]
     Active Substance: PONATINIB
  11. INOTUZUMAB OZOGAMICIN [Concomitant]
     Active Substance: INOTUZUMAB OZOGAMICIN
  12. FLUDARABINE [Concomitant]
     Active Substance: FLUDARABINE PHOSPHATE
     Dosage: 150 MILLIGRAM/SQ. METER
  13. MELPHALAN [Concomitant]
     Active Substance: MELPHALAN
     Dosage: 100 MILLIGRAM/SQ. METER
  14. VALACYCLOVIR HYDROCHLORIDE [Concomitant]
     Active Substance: VALACYCLOVIR HYDROCHLORIDE
     Indication: Prophylaxis
     Dosage: 500 MILLIGRAM, QD
     Dates: start: 20200207
  15. FLUCONAZOLE [Concomitant]
     Active Substance: FLUCONAZOLE
     Dosage: 100 MILLIGRAM, QD
     Dates: start: 20191207

REACTIONS (1)
  - Central nervous system leukaemia [Recovered/Resolved]

NARRATIVE: CASE EVENT DATE: 20200824
